FAERS Safety Report 23489323 (Version 1)
Quarter: 2024Q1

REPORT INFORMATION
  Report Type: Spontaneous
  Country: US (occurrence: None)
  Receive Date: 20240206
  Receipt Date: 20240206
  Transmission Date: 20240410
  Serious: No
  Sender: FDA-Public Use
  Company Number: US-ROCHE-3255092

PATIENT
  Sex: Female

DRUGS (2)
  1. XOLAIR [Suspect]
     Active Substance: OMALIZUMAB
     Indication: Idiopathic urticaria
     Dosage: STRENGTH: 150 MG/ML
     Route: 058
     Dates: start: 201904
  2. XOLAIR [Suspect]
     Active Substance: OMALIZUMAB

REACTIONS (9)
  - Pharyngitis streptococcal [Unknown]
  - Immunosuppression [Unknown]
  - Infection susceptibility increased [Unknown]
  - Viral upper respiratory tract infection [Unknown]
  - Upper respiratory tract infection bacterial [Unknown]
  - Therapeutic response shortened [Unknown]
  - Off label use [Unknown]
  - Dysphonia [Unknown]
  - Oropharyngeal pain [Unknown]

NARRATIVE: CASE EVENT DATE: 20220801
